FAERS Safety Report 11715405 (Version 1)
Quarter: 2015Q4

REPORT INFORMATION
  Report Type: Spontaneous
  Country: US (occurrence: US)
  Receive Date: 20151109
  Receipt Date: 20151109
  Transmission Date: 20160304
  Serious: Yes (Other)
  Sender: FDA-Public Use
  Company Number: US-JNJFOC-20151106570

PATIENT
  Sex: Female

DRUGS (1)
  1. SPORANOX [Suspect]
     Active Substance: ITRACONAZOLE
     Indication: BLASTOMYCOSIS
     Route: 048
     Dates: start: 20151105

REACTIONS (3)
  - Product size issue [Unknown]
  - Drug dose omission [Unknown]
  - Choking [Not Recovered/Not Resolved]

NARRATIVE: CASE EVENT DATE: 201511
